FAERS Safety Report 7121022-6 (Version None)
Quarter: 2010Q4

REPORT INFORMATION
  Report Type: 
  Country: None (occurrence: None)
  Receive Date: 20101124
  Receipt Date: 20101115
  Transmission Date: 20110411
  Serious: Yes (Hospitalization)
  Sender: FDA-Public Use
  Company Number: HR-JNJFOC-20100510936

PATIENT
  Sex: Female

DRUGS (2)
  1. RISPOLEPT CONSTA [Suspect]
     Indication: SCHIZOPHRENIA
     Route: 030
  2. RISPOLEPT CONSTA [Suspect]
     Route: 030

REACTIONS (1)
  - DISEASE PROGRESSION [None]
